FAERS Safety Report 9250917 (Version 1)
Quarter: 2013Q1

REPORT INFORMATION
  Report Type: Spontaneous
  Country: US (occurrence: None)
  Receive Date: 20130305
  Receipt Date: 20130305
  Transmission Date: 20140127
  Serious: Yes (Other)
  Sender: FDA-Public Use
  Company Number: 163-21880-12061941 (0)

PATIENT
  Age: 54 Year
  Sex: Male
  Weight: 79.2 kg

DRUGS (4)
  1. REVLIMID [Suspect]
     Indication: PLASMA CELL MYELOMA
     Dates: start: 201002, end: 2010
  2. ACYCLOVIR (ACYCLOVIR) [Concomitant]
  3. ASA (ACETYLSALICYLIC ACID) [Concomitant]
  4. NEURONTIN (GABAPENTIN) [Concomitant]

REACTIONS (3)
  - Neutropenia [None]
  - White blood cell count decreased [None]
  - Neuropathy peripheral [None]
